FAERS Safety Report 8903314 (Version 1)
Quarter: 2012Q4

REPORT INFORMATION
  Report Type: 
  Country: US (occurrence: US)
  Receive Date: 20121113
  Receipt Date: 20121113
  Transmission Date: 20130627
  Serious: Yes (Other)
  Sender: FDA-Public Use
  Company Number: US-ROCHE-CID000000002222224

PATIENT
  Sex: Female

DRUGS (5)
  1. KLONOPIN [Suspect]
     Indication: EPILEPSY
     Route: 065
     Dates: start: 20070227, end: 20100927
  2. TRILEPTAL [Concomitant]
     Route: 065
     Dates: start: 200702, end: 20100927
  3. TOPAMAX [Concomitant]
     Route: 065
     Dates: end: 20100927
  4. SEROQUEL [Concomitant]
     Route: 065
     Dates: end: 20100927
  5. LAMICTAL [Concomitant]
     Route: 065
     Dates: end: 20100927

REACTIONS (10)
  - Confusional state [Unknown]
  - Depressed level of consciousness [Unknown]
  - Hypokinesia [Unknown]
  - Memory impairment [Unknown]
  - Disturbance in attention [Unknown]
  - Nervousness [Unknown]
  - Mood swings [Unknown]
  - Visual impairment [Unknown]
  - Speech disorder [Unknown]
  - Coordination abnormal [Unknown]
